FAERS Safety Report 14205436 (Version 1)
Quarter: 2017Q4

REPORT INFORMATION
  Report Type: Spontaneous
  Country: US (occurrence: None)
  Receive Date: 20171118
  Receipt Date: 20171118
  Transmission Date: 20180321
  Serious: Yes (Hospitalization)
  Sender: FDA-Public Use
  Company Number: None

PATIENT
  Age: 55 Year
  Sex: Female

DRUGS (27)
  1. HYDROCODONE BITARTRATE AND ACETAMINOPHEN [Concomitant]
     Active Substance: ACETAMINOPHEN\HYDROCODONE BITARTRATE
  2. POT CL. [Concomitant]
  3. METFORMIN [Concomitant]
     Active Substance: METFORMIN HYDROCHLORIDE
  4. PROCHLORPERAZINE. [Concomitant]
     Active Substance: PROCHLORPERAZINE
  5. TORSEMIDE. [Concomitant]
     Active Substance: TORSEMIDE
  6. SPIRONOLACTONE. [Concomitant]
     Active Substance: SPIRONOLACTONE
  7. BUMETANIDE. [Concomitant]
     Active Substance: BUMETANIDE
  8. ATORVASTATIN [Concomitant]
     Active Substance: ATORVASTATIN
  9. METOLAZONE. [Concomitant]
     Active Substance: METOLAZONE
  10. ZOLPIDEM [Concomitant]
     Active Substance: ZOLPIDEM\ZOLPIDEM TARTRATE
  11. ACYCLOVIR. [Concomitant]
     Active Substance: ACYCLOVIR
  12. CEPHALEXIN. [Concomitant]
     Active Substance: CEPHALEXIN
  13. DEXAMETHASONE. [Concomitant]
     Active Substance: DEXAMETHASONE
  14. LISINOPRIL. [Concomitant]
     Active Substance: LISINOPRIL
  15. ESCITALOPRAM [Concomitant]
     Active Substance: ESCITALOPRAM OXALATE
  16. LYRICA [Concomitant]
     Active Substance: PREGABALIN
  17. LEXAPRO [Concomitant]
     Active Substance: ESCITALOPRAM OXALATE
  18. CARVEDILOL. [Concomitant]
     Active Substance: CARVEDILOL
  19. LORAZEPAM. [Concomitant]
     Active Substance: LORAZEPAM
  20. CYCLOPHOSPHAMIDE 50MG CAPSULES [Suspect]
     Active Substance: CYCLOPHOSPHAMIDE
     Indication: NEOPLASM MALIGNANT
     Route: 048
     Dates: start: 20171014
  21. METOLAZONE. [Concomitant]
     Active Substance: METOLAZONE
  22. OMEPRAZOLE. [Concomitant]
     Active Substance: OMEPRAZOLE
  23. ACETAZOLAMID [Concomitant]
     Active Substance: ACETAZOLAMIDE
  24. LISINOPRIL/HCTZ [Concomitant]
     Active Substance: HYDROCHLOROTHIAZIDE\LISINOPRIL
  25. HYDROCODONE [Concomitant]
     Active Substance: HYDROCODONE
  26. FUROSEMIDE. [Concomitant]
     Active Substance: FUROSEMIDE
  27. FARXIGA [Concomitant]
     Active Substance: DAPAGLIFLOZIN PROPANEDIOL

REACTIONS (2)
  - Weight fluctuation [None]
  - Fluid retention [None]

NARRATIVE: CASE EVENT DATE: 20171030
